FAERS Safety Report 9047550 (Version 2)
Quarter: 2013Q2

REPORT INFORMATION
  Report Type: Spontaneous
  Country: US (occurrence: US)
  Receive Date: 20130204
  Receipt Date: 20130404
  Transmission Date: 20140414
  Serious: No
  Sender: FDA-Public Use
  Company Number: US-AMGEN-USASP2013004646

PATIENT
  Age: 63 Year
  Sex: Male

DRUGS (2)
  1. ENBREL [Suspect]
     Indication: PSORIASIS
     Dosage: 50 MG, 2 TIMES/WK
     Dates: start: 19990101
  2. ENBREL [Suspect]
     Indication: PSORIATIC ARTHROPATHY

REACTIONS (14)
  - Rash erythematous [Not Recovered/Not Resolved]
  - Rash pruritic [Not Recovered/Not Resolved]
  - Skin fissures [Not Recovered/Not Resolved]
  - Extravasation [Not Recovered/Not Resolved]
  - Local swelling [Not Recovered/Not Resolved]
  - Ear swelling [Not Recovered/Not Resolved]
  - Ear haemorrhage [Not Recovered/Not Resolved]
  - Scab [Not Recovered/Not Resolved]
  - Erythema [Not Recovered/Not Resolved]
  - Skin plaque [Not Recovered/Not Resolved]
  - Secretion discharge [Recovered/Resolved]
  - Lacrimation increased [Recovered/Resolved]
  - Foreign body sensation in eyes [Recovered/Resolved]
  - Eye infection [Recovered/Resolved]
